FAERS Safety Report 5069882-7 (Version None)
Quarter: 2006Q3

REPORT INFORMATION
  Report Type: 
  Country: None (occurrence: None)
  Receive Date: 20060803
  Receipt Date: 20060717
  Transmission Date: 20061208
  Serious: Yes (Hospitalization, Other)
  Sender: FDA-Public Use
  Company Number: US-BRISTOL-MYERS SQUIBB COMPANY-13444153

PATIENT
  Age: 66 Year
  Sex: Male
  Weight: 92 kg

DRUGS (6)
  1. ERBITUX [Suspect]
     Indication: NON-SMALL CELL LUNG CANCER
     Route: 041
  2. ALIMTA [Suspect]
     Indication: NON-SMALL CELL LUNG CANCER
     Route: 041
     Dates: start: 20060405
  3. FOLIC ACID [Concomitant]
     Dates: start: 20060322
  4. VITAMIN B-12 [Concomitant]
     Dates: start: 20060312
  5. GLYBURIDE [Concomitant]
     Route: 048
  6. INSULIN [Concomitant]

REACTIONS (5)
  - ANAEMIA [None]
  - DIABETES MELLITUS [None]
  - HYPOMAGNESAEMIA [None]
  - HYPOPHOSPHATAEMIA [None]
  - LOCALISED INFECTION [None]
